FAERS Safety Report 8012519-5 (Version None)
Quarter: 2011Q4

REPORT INFORMATION
  Report Type: 
  Country: None (occurrence: None)
  Receive Date: 20111229
  Receipt Date: 20111220
  Transmission Date: 20120403
  Serious: Yes (Hospitalization)
  Sender: FDA-Public Use
  Company Number: US-BIOGENIDEC-2011BI048332

PATIENT
  Age: 51 Year
  Sex: Male

DRUGS (3)
  1. AVONEX [Concomitant]
     Indication: MULTIPLE SCLEROSIS
     Route: 030
     Dates: start: 20050211, end: 20050819
  2. TYSABRI [Suspect]
     Indication: MULTIPLE SCLEROSIS
     Route: 042
     Dates: start: 20071003, end: 20111201
  3. AVONEX [Concomitant]
     Route: 030
     Dates: start: 20071101, end: 20080801

REACTIONS (6)
  - RESPIRATORY DISTRESS [None]
  - EMPHYSEMA [None]
  - LUNG DISORDER [None]
  - CHRONIC OBSTRUCTIVE PULMONARY DISEASE [None]
  - MULTIPLE SCLEROSIS RELAPSE [None]
  - ABASIA [None]
